FAERS Safety Report 14082479 (Version 1)
Quarter: 2017Q4

REPORT INFORMATION
  Report Type: Spontaneous
  Country: US (occurrence: US)
  Receive Date: 20171013
  Receipt Date: 20171013
  Transmission Date: 20180321
  Serious: No
  Sender: FDA-Public Use
  Company Number: US-GLAXOSMITHKLINE-US2017GSK157198

PATIENT
  Sex: Male

DRUGS (1)
  1. REQUIP [Suspect]
     Active Substance: ROPINIROLE HYDROCHLORIDE
     Indication: PAIN IN EXTREMITY
     Dosage: 1 MG, BID
     Route: 048

REACTIONS (4)
  - Insomnia [Unknown]
  - Inability to afford medication [Unknown]
  - Pain in extremity [Not Recovered/Not Resolved]
  - Pain [Unknown]
